FAERS Safety Report 13349844 (Version 1)
Quarter: 2017Q1

REPORT INFORMATION
  Report Type: Spontaneous
  Country: US (occurrence: US)
  Receive Date: 20170317
  Receipt Date: 20170317
  Transmission Date: 20170429
  Serious: Yes (Disabling)
  Sender: FDA-Public Use
  Company Number: None

PATIENT
  Age: 58 Year
  Sex: Female
  Weight: 76.5 kg

DRUGS (1)
  1. CORTICOSTEROID [Suspect]
     Active Substance: CORTICOSTEROID NOS

REACTIONS (14)
  - Oral discomfort [None]
  - Post procedural complication [None]
  - Nervous system disorder [None]
  - Activities of daily living impaired [None]
  - Muscular weakness [None]
  - Impaired work ability [None]
  - Pain [None]
  - Inflammation [None]
  - Paraesthesia [None]
  - Arachnoiditis [None]
  - Fatigue [None]
  - Emotional distress [None]
  - Hypoaesthesia [None]
  - Contraindication to medical treatment [None]

NARRATIVE: CASE EVENT DATE: 20161216
